FAERS Safety Report 18139335 (Version 3)
Quarter: 2023Q2

REPORT INFORMATION
  Report Type: Spontaneous
  Country: CA (occurrence: CA)
  Receive Date: 20200812
  Receipt Date: 20230413
  Transmission Date: 20230722
  Serious: Yes (Hospitalization, Other)
  Sender: FDA-Public Use
  Company Number: CA-ALLERGAN-2029612US

PATIENT
  Sex: Female

DRUGS (34)
  1. MEMANTINE [Suspect]
     Active Substance: MEMANTINE
     Indication: Complex regional pain syndrome
     Route: 065
  2. AMITRIPTYLINE [Suspect]
     Active Substance: AMITRIPTYLINE
     Indication: Complex regional pain syndrome
  3. AMLODIPINE BESYLATE [Suspect]
     Active Substance: AMLODIPINE BESYLATE
     Indication: Complex regional pain syndrome
  4. ANAKINRA [Suspect]
     Active Substance: ANAKINRA
     Indication: Complex regional pain syndrome
     Dosage: 100 MG, QD
     Route: 058
  5. APREMILAST [Suspect]
     Active Substance: APREMILAST
     Indication: Complex regional pain syndrome
  6. BUMETANIDE [Suspect]
     Active Substance: BUMETANIDE
     Indication: Complex regional pain syndrome
  7. CAPSAICIN [Suspect]
     Active Substance: CAPSAICIN
     Indication: Complex regional pain syndrome
  8. CIMETIDINE [Suspect]
     Active Substance: CIMETIDINE
     Indication: Complex regional pain syndrome
  9. CLONIDINE [Suspect]
     Active Substance: CLONIDINE
     Indication: Complex regional pain syndrome
  10. DILTIAZEM [Suspect]
     Active Substance: DILTIAZEM
     Indication: Complex regional pain syndrome
  11. ETANERCEPT [Suspect]
     Active Substance: ETANERCEPT
     Indication: Complex regional pain syndrome
  12. HYDROXYCHLOROQUINE SULFATE [Suspect]
     Active Substance: HYDROXYCHLOROQUINE SULFATE
     Indication: Complex regional pain syndrome
  13. IBUDILAST [Suspect]
     Active Substance: IBUDILAST
     Indication: Complex regional pain syndrome
  14. KETAMINE [Suspect]
     Active Substance: KETAMINE
     Indication: Complex regional pain syndrome
  15. LIDOCAINE [Suspect]
     Active Substance: LIDOCAINE
     Indication: Complex regional pain syndrome
  16. LITHIUM CARBONATE [Suspect]
     Active Substance: LITHIUM CARBONATE
     Indication: Complex regional pain syndrome
  17. MAGNESIUM GLUCONATE [Suspect]
     Active Substance: MAGNESIUM GLUCONATE
     Indication: Migraine prophylaxis
  18. METOPROLOL [Suspect]
     Active Substance: METOPROLOL
     Indication: Complex regional pain syndrome
  19. MONTELUKAST [Suspect]
     Active Substance: MONTELUKAST SODIUM
     Indication: Complex regional pain syndrome
  20. MYCOPHENOLATE MOFETIL [Suspect]
     Active Substance: MYCOPHENOLATE MOFETIL
     Indication: Complex regional pain syndrome
  21. ACETYLCYSTEINE [Suspect]
     Active Substance: ACETYLCYSTEINE
     Indication: Complex regional pain syndrome
  22. PALMIDROL [Suspect]
     Active Substance: PALMIDROL
     Indication: Complex regional pain syndrome
  23. PENTOXIFYLLINE [Suspect]
     Active Substance: PENTOXIFYLLINE
     Indication: Complex regional pain syndrome
  24. SPIRONOLACTONE [Suspect]
     Active Substance: SPIRONOLACTONE
     Indication: Complex regional pain syndrome
     Dosage: UNK
     Route: 048
  25. VITAMIN B2 [Suspect]
     Active Substance: RIBOFLAVIN
     Indication: Complex regional pain syndrome
  26. VITAMIN C [Suspect]
     Active Substance: ASCORBIC ACID
     Indication: Complex regional pain syndrome
     Dosage: 1000 MG, QD
  27. PREDNISONE [Suspect]
     Active Substance: PREDNISONE
     Indication: Complex regional pain syndrome
     Dosage: 5 MG, QD
  28. PREDNISONE [Suspect]
     Active Substance: PREDNISONE
     Dosage: 85 MG, QD
  29. PREDNISONE [Suspect]
     Active Substance: PREDNISONE
     Dosage: 95 MG, QD
  30. MEXILETINE HYDROCHLORIDE [Suspect]
     Active Substance: MEXILETINE HYDROCHLORIDE
     Indication: Complex regional pain syndrome
  31. NALTREXONE HYDROCHLORIDE [Suspect]
     Active Substance: NALTREXONE HYDROCHLORIDE
     Indication: Complex regional pain syndrome
     Dosage: 4.5 MG, QD
  32. CALCITONIN [Concomitant]
     Active Substance: CALCITONIN
     Indication: Complex regional pain syndrome
  33. EZETIMIBE [Concomitant]
     Active Substance: EZETIMIBE
     Indication: Hyperlipidaemia
  34. TRAZODONE [Concomitant]
     Active Substance: TRAZODONE HYDROCHLORIDE
     Indication: Hyperlipidaemia

REACTIONS (22)
  - Body tinea [Recovered/Resolved]
  - Bone density decreased [Recovered/Resolved]
  - Cataract [Recovered/Resolved]
  - Cellulitis [Recovered/Resolved]
  - Contusion [Recovered/Resolved]
  - Glucose tolerance impaired [Recovered/Resolved]
  - Herpes zoster [Recovered/Resolved]
  - Hyperlipidaemia [Recovered/Resolved]
  - Impaired quality of life [Recovered/Resolved]
  - Impaired work ability [Recovered/Resolved]
  - Infection susceptibility increased [Recovered/Resolved]
  - Insomnia [Recovered/Resolved]
  - Oral herpes [Recovered/Resolved]
  - Poor quality sleep [Recovered/Resolved]
  - Purpura [Recovered/Resolved]
  - Skin disorder [Recovered/Resolved]
  - Weight increased [Recovered/Resolved]
  - Inhibitory drug interaction [Recovered/Resolved]
  - Product use in unapproved indication [Unknown]
  - Hypertension [Recovered/Resolved]
  - Fatigue [Recovered/Resolved]
  - Drug ineffective [Unknown]
